FAERS Safety Report 25184940 (Version 1)
Quarter: 2025Q2

REPORT INFORMATION
  Report Type: Report from Study
  Country: DE (occurrence: DE)
  Receive Date: 20250410
  Receipt Date: 20250410
  Transmission Date: 20250717
  Serious: Yes (Other)
  Sender: ALIMERA
  Company Number: DE-ALIMERA SCIENCES LIMITED-DE-IL-2018-004085

PATIENT
  Age: 56 Year
  Sex: Female

DRUGS (9)
  1. ILUVIEN [Suspect]
     Active Substance: FLUOCINOLONE ACETONIDE
     Indication: Diabetic retinal oedema
     Dosage: 0.25 MICROGRAM, QD - RIGHT EYE
     Route: 031
     Dates: start: 20161028
  2. ILUVIEN [Suspect]
     Active Substance: FLUOCINOLONE ACETONIDE
     Dosage: 0.25 MICROGRAM, QD - LEFT EYE
     Route: 031
     Dates: start: 20171127
  3. DORZOLAMIDE [Concomitant]
     Active Substance: DORZOLAMIDE
     Indication: Glaucoma
  4. TRAVATAN [Concomitant]
     Active Substance: TRAVOPROST
     Indication: Glaucoma
  5. RAMIPRIL [Concomitant]
     Active Substance: RAMIPRIL
     Indication: Hypertension
  6. INSULIN NOS [Concomitant]
     Active Substance: INSULIN NOS
     Indication: Diabetes mellitus
  7. PREDNISOLONE [Concomitant]
     Active Substance: PREDNISOLONE
     Indication: Product used for unknown indication
  8. VITAMIN D3 [Concomitant]
     Active Substance: CHOLECALCIFEROL
     Indication: Vitamin D deficiency
  9. CETALKONIUM\GLYCERIN\MINERAL OIL\POLOXAMER 188\TROMETHAMINE\TYLOXAPOL [Concomitant]
     Active Substance: CETALKONIUM\GLYCERIN\MINERAL OIL\POLOXAMER 188\TROMETHAMINE\TYLOXAPOL
     Indication: Dry eye

REACTIONS (3)
  - Cataract operation [Recovered/Resolved]
  - Intraocular lens implant [Recovered/Resolved]
  - Cataract [Unknown]

NARRATIVE: CASE EVENT DATE: 20180523
